FAERS Safety Report 9255472 (Version 2)
Quarter: 2013Q2

REPORT INFORMATION
  Report Type: Other
  Country: BR (occurrence: BR)
  Receive Date: 20130425
  Receipt Date: 20130628
  Transmission Date: 20140414
  Serious: No
  Sender: FDA-Public Use
  Company Number: PHHY2013BR040321

PATIENT
  Sex: Male

DRUGS (4)
  1. RITALINA [Suspect]
     Indication: ATTENTION DEFICIT/HYPERACTIVITY DISORDER
     Dosage: 2 DF, DAILY
     Route: 048
  2. RITALINA [Suspect]
     Indication: AUTISM
  3. RITALINA [Suspect]
     Indication: OFF LABEL USE
  4. RISPERIDONE [Concomitant]
     Indication: ANXIETY
     Dosage: 1 DF, DAILY
     Route: 048

REACTIONS (1)
  - No adverse event [Unknown]
